FAERS Safety Report 8453742-5 (Version None)
Quarter: 2012Q2

REPORT INFORMATION
  Report Type: 
  Country: None (occurrence: None)
  Receive Date: 20120620
  Receipt Date: 20120612
  Transmission Date: 20120825
  Serious: Yes (Death, Hospitalization)
  Sender: FDA-Public Use
  Company Number: JP-BAYER-2012-057950

PATIENT
  Sex: Female
  Weight: 45 kg

DRUGS (3)
  1. ASPIRIN [Suspect]
  2. PREDNISOLONE [Suspect]
     Indication: GLOMERULONEPHRITIS
  3. HEPARIN [Suspect]

REACTIONS (2)
  - SHOCK HAEMORRHAGIC [None]
  - POST PROCEDURAL HAEMORRHAGE [None]
